FAERS Safety Report 14714740 (Version 1)
Quarter: 2018Q2

REPORT INFORMATION
  Report Type: Report from Study
  Country: CA (occurrence: CA)
  Receive Date: 20180404
  Receipt Date: 20180404
  Transmission Date: 20180711
  Serious: Yes (Death, Hospitalization)
  Sender: FDA-Public Use
  Company Number: PHHY2017CA171716

PATIENT
  Sex: Female

DRUGS (6)
  1. OCTREOTIDE. [Suspect]
     Active Substance: OCTREOTIDE
     Indication: METASTASIS
     Dosage: UNK
     Route: 058
     Dates: start: 20171004
  2. SANDOSTATIN LAR DEPOT [Suspect]
     Active Substance: OCTREOTIDE ACETATE
     Indication: CARCINOID SYNDROME
  3. OCTREOTIDE. [Suspect]
     Active Substance: OCTREOTIDE
     Indication: INTESTINAL OBSTRUCTION
     Dosage: 300 UG, TID
     Route: 058
  4. SANDOSTATIN LAR DEPOT [Suspect]
     Active Substance: OCTREOTIDE ACETATE
     Indication: INTESTINAL OBSTRUCTION
     Dosage: 10 MG, QMO
     Route: 030
     Dates: start: 20160718
  5. OCTREOTIDE. [Suspect]
     Active Substance: OCTREOTIDE
     Indication: CARCINOID SYNDROME
  6. SANDOSTATIN LAR DEPOT [Suspect]
     Active Substance: OCTREOTIDE ACETATE
     Indication: METASTASIS

REACTIONS (3)
  - Second primary malignancy [Unknown]
  - Death [Fatal]
  - Breast cancer [Unknown]

NARRATIVE: CASE EVENT DATE: 2017
